FAERS Safety Report 4811223-1 (Version None)
Quarter: 2005Q4

REPORT INFORMATION
  Report Type: 
  Country: None (occurrence: None)
  Receive Date: 20051026
  Receipt Date: 20051026
  Transmission Date: 20060501
  Serious: Yes (Hospitalization, Other)
  Sender: FDA-Public Use
  Company Number: None

PATIENT
  Age: 53 Year
  Sex: Female
  Weight: 52.6173 kg

DRUGS (27)
  1. ANZEMET [Suspect]
     Indication: NAUSEA
     Dosage: ANZEMET 100 MG IV
     Route: 042
  2. ZOFRAN [Suspect]
     Indication: NAUSEA
     Dosage: ZOFRAN 32 MG IV
     Route: 042
  3. ATIVAN [Concomitant]
  4. DECADRON [Concomitant]
  5. CALCIUM GLUCONATE [Concomitant]
  6. IRON [Concomitant]
  7. TARCEVA [Concomitant]
  8. COUMADIN [Concomitant]
  9. LASIX [Concomitant]
  10. MG [Concomitant]
  11. KCI [Concomitant]
  12. MULTI VITAMIN LIQUI [Concomitant]
  13. NAVELBINE [Concomitant]
  14. CISPLATIN [Concomitant]
  15. AVASTIN [Concomitant]
  16. ZOMETA [Concomitant]
  17. ARANESP [Concomitant]
  18. NEUPOGEN [Concomitant]
  19. NEULASTA [Concomitant]
  20. MORPHINE [Concomitant]
  21. MIACALCIN [Concomitant]
  22. MAGNESIUM [Concomitant]
  23. DUONEB [Concomitant]
  24. CRYSTALLINE VIT B12 INJ [Concomitant]
  25. ALIMTA [Concomitant]
  26. PHENERGAN W/CODIENE SYRUP [Concomitant]
  27. POTASSIUM [Concomitant]

REACTIONS (7)
  - ANXIETY [None]
  - BLOOD PRESSURE IMMEASURABLE [None]
  - DIZZINESS [None]
  - DYSPNOEA [None]
  - NAUSEA [None]
  - SENSORY DISTURBANCE [None]
  - VISION BLURRED [None]
